FAERS Safety Report 6258590-2 (Version None)
Quarter: 2009Q3

REPORT INFORMATION
  Report Type: 
  Country: None (occurrence: None)
  Receive Date: 20090707
  Receipt Date: 20090622
  Transmission Date: 20100115
  Serious: Yes (Life-Threatening, Hospitalization)
  Sender: FDA-Public Use
  Company Number: RU-GENENTECH-283409

PATIENT
  Sex: Male

DRUGS (3)
  1. BEVACIZUMAB [Suspect]
     Indication: RENAL FAILURE
     Dosage: 10 MG/KG, Q2W
     Route: 042
     Dates: start: 20090213, end: 20090508
  2. INTERFERON ALPHA [Suspect]
     Indication: RENAL CELL CARCINOMA
     Dosage: UNK
     Route: 058
  3. THEOPHYLLINE [Concomitant]
     Dosage: UNK
     Dates: start: 19990920

REACTIONS (2)
  - ENCEPHALOPATHY [None]
  - HYPERTENSIVE CRISIS [None]
